FAERS Safety Report 11728477 (Version 1)
Quarter: 2015Q4

REPORT INFORMATION
  Report Type: Spontaneous
  Country: US (occurrence: US)
  Receive Date: 20151110
  Receipt Date: 20151110
  Transmission Date: 20160304
  Serious: No
  Sender: FDA-Public Use
  Company Number: US-ELI_LILLY_AND_COMPANY-US201111000537

PATIENT
  Age: 71 Year
  Sex: Female

DRUGS (2)
  1. FORTEO [Suspect]
     Active Substance: TERIPARATIDE
     Indication: OSTEOPOROSIS
     Dosage: 20 UG, QD
     Route: 065
     Dates: start: 20111016
  2. FORTEO [Suspect]
     Active Substance: TERIPARATIDE
     Dosage: 20 UG, QD
     Route: 065

REACTIONS (17)
  - Weight decreased [Unknown]
  - Hearing impaired [Unknown]
  - Memory impairment [Unknown]
  - Fatigue [Unknown]
  - Pain in extremity [Unknown]
  - Visual impairment [Unknown]
  - Nausea [Recovered/Resolved]
  - Pain [Unknown]
  - Anger [Unknown]
  - Depression [Not Recovered/Not Resolved]
  - Feeling abnormal [Not Recovered/Not Resolved]
  - Migraine [Recovered/Resolved]
  - Arthralgia [Unknown]
  - Anxiety [Not Recovered/Not Resolved]
  - Decreased appetite [Unknown]
  - Amnesia [Unknown]
  - Headache [Unknown]

NARRATIVE: CASE EVENT DATE: 20111016
